FAERS Safety Report 18468791 (Version 1)
Quarter: 2020Q4

REPORT INFORMATION
  Report Type: Spontaneous
  Country: US (occurrence: US)
  Receive Date: 20201105
  Receipt Date: 20201105
  Transmission Date: 20210114
  Serious: No
  Sender: FDA-Public Use
  Company Number: None

PATIENT
  Age: 52 Year
  Sex: Female
  Weight: 56.25 kg

DRUGS (18)
  1. ARNUITY ELLIPTA [Concomitant]
     Active Substance: FLUTICASONE FUROATE
  2. ZOMIG [Concomitant]
     Active Substance: ZOLMITRIPTAN
  3. B12 COMPLEX [Concomitant]
  4. GLUCOSAMINE WITH MSM [Concomitant]
  5. TYLENOL [Concomitant]
     Active Substance: ACETAMINOPHEN
  6. EFFEXOR [Concomitant]
     Active Substance: VENLAFAXINE HYDROCHLORIDE
  7. LAMICTAL [Concomitant]
     Active Substance: LAMOTRIGINE
  8. TYMLOS [Concomitant]
     Active Substance: ABALOPARATIDE
  9. ALBUTEROL. [Concomitant]
     Active Substance: ALBUTEROL
  10. BIOTIN [Concomitant]
     Active Substance: BIOTIN
  11. VIT D [Concomitant]
     Active Substance: VITAMIN D NOS
  12. CALCIUM [Concomitant]
     Active Substance: CALCIUM
  13. FLONASE [Concomitant]
     Active Substance: FLUTICASONE PROPIONATE
  14. NUCALA [Concomitant]
     Active Substance: MEPOLIZUMAB
  15. MULTIVITAMIN [Concomitant]
     Active Substance: VITAMINS
  16. MUCINEX [Concomitant]
     Active Substance: GUAIFENESIN
  17. EMGALITY [Suspect]
     Active Substance: GALCANEZUMAB-GNLM
     Indication: MIGRAINE
     Dosage: ?          QUANTITY:1 INJECTION(S);OTHER FREQUENCY:MONTHLY;?
     Route: 058
     Dates: start: 20200401, end: 20201104
  18. SPIRIVA [Concomitant]
     Active Substance: TIOTROPIUM BROMIDE MONOHYDRATE

REACTIONS (2)
  - Injection site rash [None]
  - Injection site pruritus [None]

NARRATIVE: CASE EVENT DATE: 20201104
